FAERS Safety Report 5832437-8 (Version None)
Quarter: 2008Q3

REPORT INFORMATION
  Report Type: 
  Country: None (occurrence: None)
  Receive Date: 20080730
  Receipt Date: 20080717
  Transmission Date: 20090109
  Serious: Yes (Hospitalization)
  Sender: FDA-Public Use
  Company Number: SPI200800364

PATIENT
  Age: 79 Year
  Sex: Male

DRUGS (1)
  1. AMITIZA [Suspect]
     Dosage: ORAL
     Route: 048
     Dates: start: 20080613, end: 20080701

REACTIONS (2)
  - COLITIS ISCHAEMIC [None]
  - HAEMATOCHEZIA [None]
